FAERS Safety Report 10677505 (Version 2)
Quarter: 2014Q4

REPORT INFORMATION
  Report Type: Spontaneous
  Country: US (occurrence: US)
  Receive Date: 20141228
  Receipt Date: 20141228
  Transmission Date: 20150529
  Serious: No
  Sender: FDA-Public Use
  Company Number: US-BAUSCH-SYM-2013-13838

PATIENT
  Age: 70 Year
  Sex: Female

DRUGS (3)
  1. GABAPENTIN. [Suspect]
     Active Substance: GABAPENTIN
     Indication: PRODUCT USED FOR UNKNOWN INDICATION
     Route: 048
     Dates: end: 20131128
  2. GABAPENTIN. [Suspect]
     Active Substance: GABAPENTIN
     Route: 048
     Dates: start: 20131130
  3. XENAZINE [Suspect]
     Active Substance: TETRABENAZINE
     Indication: HUNTINGTON^S DISEASE
     Dosage: 1 TABLET 3 TIMES DAILY REDUCED TO 2 TIMES DAILY
     Route: 048
     Dates: start: 20131122

REACTIONS (6)
  - Irritability [Unknown]
  - Diarrhoea [Unknown]
  - Drug effect decreased [Unknown]
  - Nervousness [Unknown]
  - Sleep disorder [Unknown]
  - Movement disorder [Unknown]

NARRATIVE: CASE EVENT DATE: 20131122
